FAERS Safety Report 11875967 (Version 1)
Quarter: 2015Q4

REPORT INFORMATION
  Report Type: Spontaneous
  Country: US (occurrence: US)
  Receive Date: 20151229
  Receipt Date: 20151229
  Transmission Date: 20160305
  Serious: No
  Sender: FDA-Public Use
  Company Number: US-AKRON, INC.-1045972

PATIENT
  Age: 72 Year
  Sex: Female
  Weight: 55 kg

DRUGS (2)
  1. KETOROLAC [Suspect]
     Active Substance: KETOROLAC\KETOROLAC TROMETHAMINE
     Indication: CATARACT
     Route: 031
     Dates: start: 20150315
  2. OFLOXACIN. [Suspect]
     Active Substance: OFLOXACIN

REACTIONS (2)
  - Palpitations [None]
  - Heart rate increased [None]

NARRATIVE: CASE EVENT DATE: 20150315
